FAERS Safety Report 5591191-8 (Version None)
Quarter: 2008Q1

REPORT INFORMATION
  Report Type: 
  Country: None (occurrence: None)
  Receive Date: 20080115
  Receipt Date: 20080109
  Transmission Date: 20080703
  Serious: Yes (Death, Hospitalization)
  Sender: FDA-Public Use
  Company Number: US-JNJFOC-20080102420

PATIENT
  Sex: Male
  Weight: 73.03 kg

DRUGS (17)
  1. INFLIXIMAB [Suspect]
     Route: 042
  2. INFLIXIMAB [Suspect]
     Route: 042
  3. INFLIXIMAB [Suspect]
     Route: 042
  4. INFLIXIMAB [Suspect]
     Route: 042
  5. INFLIXIMAB [Suspect]
     Route: 042
  6. INFLIXIMAB [Suspect]
     Route: 042
  7. INFLIXIMAB [Suspect]
     Route: 042
  8. INFLIXIMAB [Suspect]
     Route: 042
  9. INFLIXIMAB [Suspect]
     Route: 042
  10. INFLIXIMAB [Suspect]
     Route: 042
  11. INFLIXIMAB [Suspect]
     Route: 042
  12. INFLIXIMAB [Suspect]
     Route: 042
  13. INFLIXIMAB [Suspect]
     Route: 042
  14. INFLIXIMAB [Suspect]
     Indication: CROHN'S DISEASE
     Dosage: 7 INFUSIONS PRIOR TO TREAT
     Route: 042
  15. ANTIBIOTICS [Concomitant]
  16. NARCOTIC ANALGESICS [Concomitant]
  17. PREDNISONE TAB [Concomitant]

REACTIONS (4)
  - ABDOMINAL PAIN [None]
  - COLON CANCER [None]
  - METASTASES TO ABDOMINAL CAVITY [None]
  - SIGNET-RING CELL CARCINOMA [None]
